FAERS Safety Report 20091597 (Version 8)
Quarter: 2022Q3

REPORT INFORMATION
  Report Type: Spontaneous
  Country: BR (occurrence: BR)
  Receive Date: 20211119
  Receipt Date: 20220627
  Transmission Date: 20221027
  Serious: Yes (Other)
  Sender: FDA-Public Use
  Company Number: BR-NOVARTISPH-NVSC2021BR263601

PATIENT
  Age: 44 Year
  Sex: Male
  Weight: 110 kg

DRUGS (3)
  1. MAXIDEX [Suspect]
     Active Substance: DEXAMETHASONE
     Indication: Ocular hyperaemia
     Dosage: UNK UNK, BID
     Route: 047
     Dates: start: 202108, end: 202201
  2. MAXIDEX [Suspect]
     Active Substance: DEXAMETHASONE
     Indication: Eye irritation
     Dosage: UNK UNK, QD (ONE DROP EACH EYE, USED FOR 3 MONTHS)
     Route: 047
     Dates: start: 2021
  3. MAXIDEX [Suspect]
     Active Substance: DEXAMETHASONE
     Indication: Eye inflammation
     Dosage: 1 DRP EACH EYE, QD (BY THE NIGHT)
     Route: 047
     Dates: start: 2021

REACTIONS (3)
  - Cataract [Not Recovered/Not Resolved]
  - Blindness [Not Recovered/Not Resolved]
  - Glaucoma [Not Recovered/Not Resolved]

NARRATIVE: CASE EVENT DATE: 20210801
